FAERS Safety Report 23122452 (Version 2)
Quarter: 2023Q4

REPORT INFORMATION
  Report Type: Spontaneous
  Country: CH (occurrence: CH)
  Receive Date: 20231030
  Receipt Date: 20231107
  Transmission Date: 20240110
  Serious: Yes (Death, Other)
  Sender: FDA-Public Use
  Company Number: CH-AMGEN-CHESP2023191188

PATIENT

DRUGS (3)
  1. BEVACIZUMAB [Suspect]
     Active Substance: BEVACIZUMAB
     Indication: Glioblastoma
     Dosage: UNK
     Route: 065
  2. LOMUSTINE [Concomitant]
     Active Substance: LOMUSTINE
     Indication: Glioblastoma
     Dosage: UNK
     Route: 065
  3. TEMOZOLOMIDE [Concomitant]
     Active Substance: TEMOZOLOMIDE
     Indication: Glioblastoma
     Dosage: UNK
     Route: 065

REACTIONS (2)
  - Death [Fatal]
  - Glioblastoma [Unknown]
